FAERS Safety Report 19809900 (Version 1)
Quarter: 2021Q3

REPORT INFORMATION
  Report Type: Spontaneous
  Country: FI (occurrence: FI)
  Receive Date: 20210908
  Receipt Date: 20210908
  Transmission Date: 20211014
  Serious: Yes (Life-Threatening, Hospitalization, Other)
  Sender: FDA-Public Use
  Company Number: FI-AMGEN-FINSP2021138471

PATIENT
  Age: 48 Year
  Sex: Female

DRUGS (24)
  1. CARBOPLATIN. [Concomitant]
     Active Substance: CARBOPLATIN
     Dosage: AUC 5 OR AUC 6
     Route: 042
     Dates: start: 20201217, end: 20201217
  2. CARBOPLATIN. [Concomitant]
     Active Substance: CARBOPLATIN
     Dosage: AUC 5 OR AUC 6
     Route: 042
     Dates: start: 20210111, end: 20210111
  3. PEPCID [Concomitant]
     Active Substance: FAMOTIDINE
     Indication: PREMEDICATION
     Dosage: DAILY
     Route: 048
     Dates: start: 20201217, end: 20201217
  4. MVASI [Suspect]
     Active Substance: BEVACIZUMAB-AWWB
     Indication: OVARIAN CANCER
     Dosage: 1300 MILLIGRAM
     Route: 042
     Dates: start: 20210111, end: 20210111
  5. ALOXI [Concomitant]
     Active Substance: PALONOSETRON HYDROCHLORIDE
     Indication: PREMEDICATION
     Dosage: DAILY
     Route: 048
     Dates: start: 20201217
  6. PACLITAXEL. [Concomitant]
     Active Substance: PACLITAXEL
     Dosage: 340 MILLIGRAM
     Route: 042
     Dates: start: 20201217, end: 20201217
  7. FLAGYL [Concomitant]
     Active Substance: METRONIDAZOLE\METRONIDAZOLE HYDROCHLORIDE
     Indication: POST PROCEDURAL INFECTION
     Dosage: DAILY
     Route: 048
     Dates: start: 20210301, end: 20210406
  8. PACLITAXEL. [Concomitant]
     Active Substance: PACLITAXEL
     Dosage: 360 MILLIGRAM
     Route: 042
     Dates: start: 20210519, end: 20210519
  9. TAVANIC [Concomitant]
     Active Substance: LEVOFLOXACIN
     Indication: POST PROCEDURAL INFECTION
     Dosage: UNK
     Route: 048
     Dates: start: 20210526
  10. TAZOCIN [Concomitant]
     Active Substance: PIPERACILLIN SODIUM\TAZOBACTAM SODIUM
     Dosage: DAILY
     Dates: start: 20210422, end: 20210426
  11. AMOXIN COMP [AMOXICILLIN TRIHYDRATE;CLAVULANATE POTASSIUM] [Concomitant]
     Active Substance: AMOXICILLIN\CLAVULANATE POTASSIUM
     Indication: POST PROCEDURAL INFECTION
     Dosage: DAILY
     Route: 048
     Dates: start: 20210412, end: 20210419
  12. HISTEC [Concomitant]
     Active Substance: CETIRIZINE HYDROCHLORIDE
     Indication: PREMEDICATION
     Dosage: DAILY
     Route: 048
     Dates: start: 20201217, end: 20201217
  13. KEFEXIN [Concomitant]
     Active Substance: CEPHALEXIN
     Indication: POST PROCEDURAL INFECTION
     Dosage: DAILY
     Route: 048
     Dates: start: 20210401, end: 20210406
  14. CARBOPLATIN. [Concomitant]
     Active Substance: CARBOPLATIN
     Dosage: AUC 5 OR AUC 6
     Route: 042
     Dates: start: 20210208, end: 20210208
  15. CARBOPLATIN. [Concomitant]
     Active Substance: CARBOPLATIN
     Dosage: AUC 5 OR AUC 6
     Route: 042
     Dates: start: 20210519, end: 20210519
  16. PACLITAXEL. [Concomitant]
     Active Substance: PACLITAXEL
     Dosage: 175
     Route: 042
  17. METRONIDAZOLE. [Concomitant]
     Active Substance: METRONIDAZOLE
     Indication: POST PROCEDURAL INFECTION
     Dosage: UNK
     Route: 048
     Dates: start: 20210526
  18. DEXAMETASON [DEXAMETHASONE] [Concomitant]
     Active Substance: DEXAMETHASONE
     Dosage: DAILY
     Route: 048
     Dates: start: 20201217, end: 20201217
  19. MVASI [Suspect]
     Active Substance: BEVACIZUMAB-AWWB
     Dosage: 1100 MILLIGRAM
     Route: 042
     Dates: start: 20210519, end: 20210519
  20. SOLU?CORTEF [Concomitant]
     Active Substance: HYDROCORTISONE SODIUM SUCCINATE
     Indication: HYPERSENSITIVITY
     Dosage: DAILY
     Route: 042
     Dates: start: 20201217, end: 20201217
  21. DEXAMETASON [DEXAMETHASONE] [Concomitant]
     Active Substance: DEXAMETHASONE
     Indication: PREMEDICATION
     Dosage: DAILY
     Route: 048
     Dates: start: 20210111
  22. PACLITAXEL. [Concomitant]
     Active Substance: PACLITAXEL
     Dosage: 390 MILLIGRAM
     Route: 042
     Dates: start: 20210111, end: 20210111
  23. PACLITAXEL. [Concomitant]
     Active Substance: PACLITAXEL
     Dosage: 390 MILLIGRAM
     Route: 042
     Dates: start: 20210208, end: 20210208
  24. TAZOCIN [Concomitant]
     Active Substance: PIPERACILLIN SODIUM\TAZOBACTAM SODIUM
     Indication: POST PROCEDURAL INFECTION
     Dosage: DAILY
     Dates: start: 20210306, end: 20210412

REACTIONS (1)
  - Abdominal abscess [Recovering/Resolving]

NARRATIVE: CASE EVENT DATE: 20210703
